FAERS Safety Report 5419513-9 (Version None)
Quarter: 2007Q3

REPORT INFORMATION
  Report Type: 
  Country: None (occurrence: None)
  Receive Date: 20070817
  Receipt Date: 20070817
  Transmission Date: 20080115
  Serious: Yes (Life-Threatening, Hospitalization)
  Sender: FDA-Public Use
  Company Number: None

PATIENT
  Age: 58 Year
  Sex: Male
  Weight: 102.5129 kg

DRUGS (2)
  1. ADENOSINE [Suspect]
     Indication: CARDIOVASCULAR DISORDER
     Dosage: 84MG ONCE IV
     Route: 042
     Dates: start: 20070611, end: 20070611
  2. ADENOSINE [Suspect]
     Indication: SURGERY
     Dosage: 84MG ONCE IV
     Route: 042
     Dates: start: 20070611, end: 20070611

REACTIONS (2)
  - ACUTE MYOCARDIAL INFARCTION [None]
  - PROCEDURAL COMPLICATION [None]
